FAERS Safety Report 24895018 (Version 1)
Quarter: 2025Q1

REPORT INFORMATION
  Report Type: Other
  Country: PT (occurrence: PT)
  Receive Date: 20250128
  Receipt Date: 20250128
  Transmission Date: 20250409
  Serious: Yes (Hospitalization, Other)
  Sender: COREPHARMA LLC
  Company Number: PT-CorePharma LLC-2169922

PATIENT
  Age: 79 Year
  Sex: Male

DRUGS (7)
  1. AMLODIPINE BESYLATE [Suspect]
     Active Substance: AMLODIPINE BESYLATE
     Indication: Hypertension
  2. PREDNISOLONE [Interacting]
     Active Substance: PREDNISOLONE
  3. INSULIN NOS [Concomitant]
     Active Substance: INSULIN NOS
  4. CARVEDILOL [Concomitant]
     Active Substance: CARVEDILOL
  5. LINAGLIPTIN [Concomitant]
     Active Substance: LINAGLIPTIN
  6. FUROSEMIDE [Concomitant]
     Active Substance: FUROSEMIDE
  7. CANDESARTAN [Concomitant]
     Active Substance: CANDESARTAN

REACTIONS (2)
  - Hepatotoxicity [Recovering/Resolving]
  - Drug interaction [Unknown]
